FAERS Safety Report 9547465 (Version 1)
Quarter: 2013Q3

REPORT INFORMATION
  Report Type: Spontaneous
  Country: GB (occurrence: GB)
  Receive Date: 20130924
  Receipt Date: 20130924
  Transmission Date: 20140515
  Serious: Yes (Other)
  Sender: FDA-Public Use
  Company Number: GB-JNJFOC-20130907469

PATIENT
  Sex: Male

DRUGS (9)
  1. ETRAVIRINE [Suspect]
     Indication: HIV INFECTION
     Route: 048
  2. ETRAVIRINE [Suspect]
     Indication: HIV INFECTION
     Route: 048
  3. EFAVIRENZ [Suspect]
     Indication: HIV INFECTION
     Route: 065
  4. EFAVIRENZ [Suspect]
     Indication: HIV INFECTION
     Route: 065
  5. TRUVADA [Suspect]
     Indication: HIV INFECTION
     Route: 065
  6. EPZICOM [Suspect]
     Indication: HIV INFECTION
     Route: 065
  7. ABACAVIR [Suspect]
     Indication: HIV INFECTION
     Route: 065
  8. TENOFOVIR [Suspect]
     Indication: HIV INFECTION
     Route: 065
  9. LAMIVUDINE [Suspect]
     Indication: HIV INFECTION
     Route: 065

REACTIONS (11)
  - Nervous system disorder [Unknown]
  - Depression [Unknown]
  - Dizziness [Unknown]
  - Insomnia [Unknown]
  - Anxiety [Unknown]
  - Disturbance in attention [Unknown]
  - Headache [Unknown]
  - Somnolence [Unknown]
  - Fatigue [Unknown]
  - Abnormal dreams [Unknown]
  - Nervousness [Unknown]
